FAERS Safety Report 6857961-0 (Version None)
Quarter: 2010Q3

REPORT INFORMATION
  Report Type: 
  Country: None (occurrence: None)
  Receive Date: 20100714
  Receipt Date: 20100702
  Transmission Date: 20110219
  Serious: Yes (Other)
  Sender: FDA-Public Use
  Company Number: DSM-2010-01004

PATIENT
  Age: 52 Year
  Sex: Female

DRUGS (1)
  1. OLMESARTAN MEDOXOMIL [Suspect]
     Indication: HYPERTENSION
     Dosage: 10 MG (10 MG), ORAL
     Route: 048
     Dates: start: 20100326, end: 20100401

REACTIONS (1)
  - DRUG HYPERSENSITIVITY [None]
